FAERS Safety Report 9062602 (Version 2)
Quarter: 2013Q1

REPORT INFORMATION
  Report Type: Spontaneous
  Country: US (occurrence: None)
  Receive Date: 20130122
  Receipt Date: 20130212
  Transmission Date: 20140127
  Serious: Yes (Life-Threatening, Other)
  Sender: FDA-Public Use
  Company Number: US-010611

PATIENT
  Age: 87 Year
  Sex: Male
  Weight: 87.09 kg

DRUGS (13)
  1. DEGARELIX [Suspect]
     Indication: PROSTATE CANCER
     Dosage: (240 MG 1X/ SUBCUTANEOUS),?
     Route: 058
     Dates: start: 20120705, end: 20120705
  2. PROVENCE [Suspect]
     Indication: PROSTATE CANCER
     Dates: start: 20121115, end: 20121115
  3. LISINOPRIL [Concomitant]
  4. ASPIRIN [Concomitant]
  5. CALCIUM 600 WITH VITAMIN D [Concomitant]
  6. FIBER [Concomitant]
  7. FINASTERIDE [Concomitant]
  8. FISH OIL [Concomitant]
  9. GABAPENTIN [Concomitant]
  10. HYDROCHLOROTHIAZIDE [Concomitant]
  11. PROBIOTIC [Concomitant]
  12. XGEVA [Concomitant]
  13. IBUPROFEN [Concomitant]

REACTIONS (5)
  - Anaphylactic reaction [None]
  - Injection site pain [None]
  - Abdominal distension [None]
  - Abdominal pain [None]
  - Unresponsive to stimuli [None]
